FAERS Safety Report 21460918 (Version 2)
Quarter: 2022Q4

REPORT INFORMATION
  Report Type: Report from Study
  Country: US (occurrence: US)
  Receive Date: 20221015
  Receipt Date: 20221101
  Transmission Date: 20230112
  Serious: No
  Sender: FDA-Public Use
  Company Number: US-ABBVIE-4144686

PATIENT
  Sex: Female

DRUGS (3)
  1. HUMIRA [Suspect]
     Active Substance: ADALIMUMAB
     Indication: Rheumatoid arthritis
     Route: 058
  2. Covid vaccine: Pfizer/BioNtech [Concomitant]
     Indication: COVID-19 immunisation
     Route: 030
  3. Covid vaccine: Pfizer/BioNtech [Concomitant]
     Indication: COVID-19 immunisation
     Route: 030

REACTIONS (4)
  - Rash [Unknown]
  - Pruritus [Unknown]
  - Arthralgia [Unknown]
  - Arthralgia [Unknown]
